FAERS Safety Report 25678012 (Version 3)
Quarter: 2025Q4

REPORT INFORMATION
  Report Type: Spontaneous
  Country: GB (occurrence: GB)
  Receive Date: 20250813
  Receipt Date: 20251003
  Transmission Date: 20260117
  Serious: No
  Sender: PFIZER
  Company Number: GB-PFIZER INC-PV202500046803

PATIENT
  Age: 71 Year
  Sex: Male

DRUGS (1)
  1. GENOTROPIN [Suspect]
     Active Substance: SOMATROPIN
     Dosage: UNK

REACTIONS (1)
  - Device defective [Unknown]
